FAERS Safety Report 7281617-6 (Version None)
Quarter: 2011Q1

REPORT INFORMATION
  Report Type: 
  Country: None (occurrence: None)
  Receive Date: 20110208
  Receipt Date: 20110202
  Transmission Date: 20110831
  Serious: Yes (Death)
  Sender: FDA-Public Use
  Company Number: PHFR2010GB05293

PATIENT
  Sex: Male

DRUGS (8)
  1. CLOZARIL [Suspect]
     Dosage: UNK
     Route: 048
     Dates: start: 20100611
  2. METFORMIN HCL [Concomitant]
     Dosage: 500 MG, BID
  3. OMEPRAZOLE [Concomitant]
     Dosage: UNK
     Route: 048
  4. CLOZARIL [Suspect]
     Indication: SCHIZOPHRENIA
     Dosage: UNK
     Dates: start: 19940621
  5. FLUOXETINE [Concomitant]
     Dosage: 60 MG/DAY
     Route: 048
  6. SENNA [Concomitant]
     Route: 048
  7. DIAZEPAM [Concomitant]
     Dosage: 2 MG MAX 4 PER WEEK
     Route: 048
  8. LACTULOSE [Concomitant]
     Route: 048

REACTIONS (1)
  - LARGE INTESTINAL OBSTRUCTION [None]
